FAERS Safety Report 14673744 (Version 3)
Quarter: 2018Q3

REPORT INFORMATION
  Report Type: Spontaneous
  Country: US (occurrence: US)
  Receive Date: 20180323
  Receipt Date: 20180702
  Transmission Date: 20181010
  Serious: Yes (Other)
  Sender: FDA-Public Use
  Company Number: US-009507513-1803USA007111

PATIENT
  Age: 71 Year
  Sex: Female

DRUGS (2)
  1. STERILE DILUENT (WATER) [Suspect]
     Active Substance: WATER
     Dosage: UNK
     Route: 030
     Dates: start: 20180111, end: 20180111
  2. ZOSTAVAX [Suspect]
     Active Substance: VARICELLA-ZOSTER VIRUS STRAIN OKA/MERCK LIVE ANTIGEN
     Indication: PROPHYLAXIS
     Dosage: 1 DF
     Route: 030
     Dates: start: 20180111, end: 20180111

REACTIONS (12)
  - Herpes zoster oticus [Recovered/Resolved]
  - Vaccination site warmth [Recovered/Resolved]
  - Incorrect route of drug administration [Unknown]
  - Injection site pain [Unknown]
  - Vaccination site swelling [Recovered/Resolved]
  - Headache [Not Recovered/Not Resolved]
  - Herpes zoster [Not Recovered/Not Resolved]
  - Vaccination site erythema [Recovered/Resolved]
  - Vaccination site pruritus [Unknown]
  - Vaccination complication [Recovered/Resolved]
  - Renal disorder [Unknown]
  - Gastric disorder [Unknown]

NARRATIVE: CASE EVENT DATE: 2018
